FAERS Safety Report 4831354-X (Version None)
Quarter: 2005Q4

REPORT INFORMATION
  Report Type: 
  Country: None (occurrence: None)
  Receive Date: 20051118
  Receipt Date: 20050927
  Transmission Date: 20060501
  Serious: Yes (Hospitalization)
  Sender: FDA-Public Use
  Company Number: US-AVENTIS-200519093US

PATIENT
  Sex: Female
  Weight: 65.9 kg

DRUGS (4)
  1. TAXOTERE [Suspect]
     Indication: BREAST CANCER METASTATIC
     Dosage: DOSE: UNK
     Dates: start: 20050601, end: 20051101
  2. IBUPROFEN [Concomitant]
     Dosage: DOSE: UNKNOWN
  3. ARIMIDEX [Concomitant]
  4. XANAX [Concomitant]
     Dosage: DOSE: UNKNOWN

REACTIONS (16)
  - AGITATION [None]
  - ALOPECIA [None]
  - ANXIETY [None]
  - BLOOD POTASSIUM DECREASED [None]
  - CONSTIPATION [None]
  - DRY SKIN [None]
  - DYSGEUSIA [None]
  - EPISTAXIS [None]
  - ERYTHEMA [None]
  - FATIGUE [None]
  - FEELING ABNORMAL [None]
  - INSOMNIA [None]
  - LACRIMATION INCREASED [None]
  - MENTAL DISORDER [None]
  - MYALGIA [None]
  - SINUSITIS [None]
